FAERS Safety Report 13280403 (Version 2)
Quarter: 2017Q1

REPORT INFORMATION
  Report Type: Spontaneous
  Country: US (occurrence: US)
  Receive Date: 20170301
  Receipt Date: 20170330
  Transmission Date: 20170428
  Serious: Yes (Other)
  Sender: FDA-Public Use
  Company Number: US-ROCHE-1900167

PATIENT
  Sex: Female
  Weight: 61.29 kg

DRUGS (5)
  1. TRAMADOL. [Concomitant]
     Active Substance: TRAMADOL
  2. ALECENSA [Suspect]
     Active Substance: ALECTINIB HYDROCHLORIDE
     Indication: LUNG NEOPLASM MALIGNANT
     Dosage: 4 PO BID
     Route: 048
     Dates: start: 20160419
  3. ONDANSETRON [Concomitant]
     Active Substance: ONDANSETRON
  4. BUTABARBITAL [Concomitant]
     Active Substance: BUTABARBITAL
  5. MELOXICAM. [Concomitant]
     Active Substance: MELOXICAM

REACTIONS (2)
  - Vertigo [Unknown]
  - Vision blurred [Unknown]
